FAERS Safety Report 8079260-4 (Version None)
Quarter: 2012Q1

REPORT INFORMATION
  Report Type: 
  Country: None (occurrence: None)
  Receive Date: 20120128
  Receipt Date: 20110820
  Transmission Date: 20120608
  Serious: No
  Sender: FDA-Public Use
  Company Number: US-ABBOTT-11P-163-0848213-00

PATIENT
  Age: 53 Year
  Sex: Female

DRUGS (8)
  1. ASPIRIN [Concomitant]
     Indication: PRODUCT USED FOR UNKNOWN INDICATION
  2. CONTROLLED INHALER THAT IS DARK BURGANDY IN COLOR [Concomitant]
     Indication: PRODUCT USED FOR UNKNOWN INDICATION
  3. FORTAMET [Concomitant]
     Indication: DIABETES MELLITUS
  4. ONGLYZA [Concomitant]
     Indication: DIABETES MELLITUS
     Dosage: DAILY
  5. HUMIRA [Suspect]
     Indication: RHEUMATOID ARTHRITIS
     Dates: start: 20110715
  6. ZYRTEC [Concomitant]
     Indication: HYPERSENSITIVITY
  7. CYMBALTA [Concomitant]
     Indication: PRODUCT USED FOR UNKNOWN INDICATION
  8. PROAIR HFA [Concomitant]
     Indication: PRODUCT USED FOR UNKNOWN INDICATION
     Dosage: PRN

REACTIONS (3)
  - ERYTHEMA [None]
  - PRURITUS [None]
  - URTICARIA [None]
